FAERS Safety Report 14574226 (Version 12)
Quarter: 2018Q4

REPORT INFORMATION
  Report Type: Report from Study
  Country: US (occurrence: US)
  Receive Date: 20180226
  Receipt Date: 20181203
  Transmission Date: 20190204
  Serious: Yes (Other)
  Sender: FDA-Public Use
  Company Number: US-ACTELION-A-US2018-168158

PATIENT
  Age: 41 Year
  Sex: Female
  Weight: 89.8 kg

DRUGS (6)
  1. TYLENOL [Suspect]
     Active Substance: ACETAMINOPHEN
     Indication: PAIN
     Dosage: UNK
     Route: 048
     Dates: end: 20180824
  2. LASIX [Concomitant]
     Active Substance: FUROSEMIDE
  3. ORENITRAM [Concomitant]
     Active Substance: TREPROSTINIL
     Dosage: 12.5 MG, TID
  4. OPSUMIT [Suspect]
     Active Substance: MACITENTAN
     Indication: PULMONARY ARTERIAL HYPERTENSION
     Dosage: 10 MG, QD
     Route: 048
     Dates: start: 20180123
  5. ADCIRCA [Concomitant]
     Active Substance: TADALAFIL
  6. REMODULIN [Suspect]
     Active Substance: TREPROSTINIL
     Indication: PULMONARY ARTERIAL HYPERTENSION
     Dosage: 66 NG/KG, PER MIN
     Route: 065
     Dates: start: 20160408

REACTIONS (25)
  - Diarrhoea [Not Recovered/Not Resolved]
  - Peripheral swelling [Unknown]
  - Gastroenteritis viral [Not Recovered/Not Resolved]
  - Oedema [Unknown]
  - Headache [Not Recovered/Not Resolved]
  - Oropharyngeal pain [Unknown]
  - Contusion [Recovering/Resolving]
  - Ocular icterus [Unknown]
  - Rhinorrhoea [Unknown]
  - Myalgia [Unknown]
  - Decreased appetite [Unknown]
  - Arthralgia [Unknown]
  - Fluid retention [Unknown]
  - Nasopharyngitis [Unknown]
  - Nausea [Not Recovered/Not Resolved]
  - Pain in jaw [Not Recovered/Not Resolved]
  - Abdominal pain upper [Not Recovered/Not Resolved]
  - Swelling face [Recovered/Resolved]
  - Pain [Unknown]
  - Liver function test abnormal [Recovered/Resolved]
  - Insomnia [Unknown]
  - Alanine aminotransferase increased [Recovered/Resolved]
  - Aspartate aminotransferase increased [Recovered/Resolved]
  - Pain in extremity [Not Recovered/Not Resolved]
  - Flushing [Recovering/Resolving]

NARRATIVE: CASE EVENT DATE: 201808
